FAERS Safety Report 11204239 (Version 1)
Quarter: 2015Q2

REPORT INFORMATION
  Report Type: Spontaneous
  Country: US (occurrence: US)
  Receive Date: 20150620
  Receipt Date: 20150620
  Transmission Date: 20150821
  Serious: No
  Sender: FDA-Public Use
  Company Number: US-009507513-1506USA004321

PATIENT
  Sex: Female

DRUGS (1)
  1. NUVARING [Suspect]
     Active Substance: ETHINYL ESTRADIOL\ETONOGESTREL
     Indication: CONTRACEPTION
     Dosage: 0.015/0.12 (UNITS NOT PROVIDED)
     Route: 067
     Dates: start: 20150526

REACTIONS (2)
  - Vaginal infection [Not Recovered/Not Resolved]
  - Vulvovaginal mycotic infection [Recovered/Resolved]
